FAERS Safety Report 8092008-2 (Version None)
Quarter: 2012Q1

REPORT INFORMATION
  Report Type: 
  Country: None (occurrence: None)
  Receive Date: 20120130
  Receipt Date: 20120130
  Transmission Date: 20120608
  Serious: Yes (Other)
  Sender: FDA-Public Use
  Company Number: None

PATIENT
  Sex: Female

DRUGS (1)
  1. REMICADE [Suspect]
     Dosage: 500MG EVERY 5 WKS IV
     Route: 042
     Dates: start: 20100212, end: 20111205

REACTIONS (2)
  - SKIN DISORDER [None]
  - RASH GENERALISED [None]
